FAERS Safety Report 26112947 (Version 1)
Quarter: 2025Q4

REPORT INFORMATION
  Report Type: Spontaneous
  Country: EU (occurrence: EU)
  Receive Date: 20251202
  Receipt Date: 20251202
  Transmission Date: 20260118
  Serious: Yes (Other)
  Sender: NOVARTIS
  Company Number: EU-002147023-NVSC2025BE182529

PATIENT
  Sex: Female

DRUGS (1)
  1. LETROZOLE [Suspect]
     Active Substance: LETROZOLE
     Indication: Metastatic neoplasm
     Dosage: 2.5 MG, QD
     Route: 065
     Dates: start: 20250627, end: 20251119

REACTIONS (1)
  - Ovarian cancer [Unknown]
